FAERS Safety Report 8799989 (Version 1)
Quarter: 2012Q4

REPORT INFORMATION
  Report Type: Report from Study
  Country: CA (occurrence: CA)
  Receive Date: 20120921
  Receipt Date: 20120921
  Transmission Date: 20130627
  Serious: Yes (Other)
  Sender: FDA-Public Use
  Company Number: CA-ROCHE-1125296

PATIENT
  Sex: Female
  Weight: 47.67 kg

DRUGS (4)
  1. MABTHERA [Suspect]
     Indication: RHEUMATOID ARTHRITIS
     Route: 042
     Dates: start: 20101014
  2. VITAMIN B12 [Concomitant]
     Route: 065
  3. WARFARIN [Concomitant]
  4. COZAAR [Concomitant]

REACTIONS (2)
  - Skin ulcer [Recovered/Resolved]
  - Nerve injury [Not Recovered/Not Resolved]
